FAERS Safety Report 11693253 (Version 1)
Quarter: 2015Q4

REPORT INFORMATION
  Report Type: Spontaneous
  Country: CN (occurrence: CN)
  Receive Date: 20151103
  Receipt Date: 20151103
  Transmission Date: 20160304
  Serious: Yes (Other)
  Sender: FDA-Public Use
  Company Number: CN-PFIZER INC-2015360497

PATIENT
  Age: 47 Year
  Sex: Female
  Weight: 50 kg

DRUGS (1)
  1. PHARMORUBICIN [Suspect]
     Active Substance: EPIRUBICIN
     Indication: LUNG NEOPLASM MALIGNANT
     Dosage: 70 MG, 1X/DAY
     Route: 041
     Dates: start: 20150429, end: 20150429

REACTIONS (5)
  - White blood cell count decreased [Recovering/Resolving]
  - Rash [Recovered/Resolved]
  - Henoch-Schonlein purpura [Recovering/Resolving]
  - Pruritus [Recovered/Resolved]
  - Vomiting [Recovered/Resolved]

NARRATIVE: CASE EVENT DATE: 20150429
